FAERS Safety Report 25312621 (Version 2)
Quarter: 2025Q4

REPORT INFORMATION
  Report Type: Report from Study
  Country: US (occurrence: None)
  Receive Date: 20250514
  Receipt Date: 20251119
  Transmission Date: 20260118
  Serious: Yes (Other)
  Sender: UCB
  Company Number: US-UCBSA-2025017515

PATIENT
  Age: 7 Year
  Weight: 27 kg

DRUGS (10)
  1. FENFLURAMINE [Suspect]
     Active Substance: FENFLURAMINE
     Indication: Lennox-Gastaut syndrome
     Dosage: 3.5 MILLILITER, 2X/DAY (BID)
  2. FENFLURAMINE [Suspect]
     Active Substance: FENFLURAMINE
     Dosage: 3.5 MILLILITER, 2X/DAY (BID)
  3. FENFLURAMINE [Suspect]
     Active Substance: FENFLURAMINE
     Dosage: 4 MILLILITER, 2X/DAY (BID) (2.2 MG/ML)
  4. ONFI [Concomitant]
     Active Substance: CLOBAZAM
     Indication: Product used for unknown indication
     Dosage: 2.5 MG/ML SUSPENSION 3 ML ORALLY EVERY 12 HOURS
  5. ONFI [Concomitant]
     Active Substance: CLOBAZAM
     Dosage: 2.5 MG/ML SUSPENSION 3 ML ORALLY EVERY 12 HOURS
  6. EPIDIOLEX [Concomitant]
     Active Substance: CANNABIDIOL
     Indication: Product used for unknown indication
     Dosage: 100 MG/ML (3ML BY MOUTH EVERY 12 HOURS)
  7. DIASTAT ACUDIAL [Concomitant]
     Active Substance: DIAZEPAM
     Indication: Seizure cluster
     Dosage: 7.5 MG PR PRN SEIZURES GREATER THAN 3 MINUTES, CLUSTER SEIZURES
  8. DIASTAT ACUDIAL [Concomitant]
     Active Substance: DIAZEPAM
     Dosage: 10 MILLIGRAM
  9. CLOBAZAM [Concomitant]
     Active Substance: CLOBAZAM
     Indication: Product used for unknown indication
     Dosage: 2.5 MG/ML SUSPENSION GIVE ^JEFFREY^ 8 ML ORALLY EVERY 12 HOURS 30 DAYS
  10. DIAZEPAM [Concomitant]
     Active Substance: DIAZEPAM
     Indication: Seizure
     Dosage: UNK 10 MG GEL AS NEEDED

REACTIONS (4)
  - Seizure [Unknown]
  - Cough [Unknown]
  - Anxiety [Unknown]
  - Abnormal behaviour [Unknown]
